FAERS Safety Report 8129573-2 (Version None)
Quarter: 2012Q1

REPORT INFORMATION
  Report Type: 
  Country: None (occurrence: None)
  Receive Date: 20120210
  Receipt Date: 20120201
  Transmission Date: 20120608
  Serious: Yes (Death)
  Sender: FDA-Public Use
  Company Number: US-GLAXOSMITHKLINE-A0930659A

PATIENT
  Sex: Male

DRUGS (1)
  1. PROMACTA [Suspect]
     Indication: MYELODYSPLASTIC SYNDROME
     Dosage: 50MG PER DAY
     Dates: start: 20110118, end: 20110204

REACTIONS (4)
  - DISEASE PROGRESSION [None]
  - FATIGUE [None]
  - HAEMATOLOGICAL MALIGNANCY [None]
  - GRANULOCYTOPENIA [None]
